FAERS Safety Report 5171207-3 (Version None)
Quarter: 2006Q4

REPORT INFORMATION
  Report Type: 
  Country: None (occurrence: None)
  Receive Date: 20061213
  Receipt Date: 20060417
  Transmission Date: 20070319
  Serious: Yes (Life-Threatening, Other)
  Sender: FDA-Public Use
  Company Number: US-AMGEN-KDL176712

PATIENT
  Sex: Female

DRUGS (4)
  1. ENBREL [Suspect]
     Indication: SERONEGATIVE ARTHRITIS
     Route: 058
     Dates: start: 20050201
  2. PLAQUENIL [Concomitant]
  3. AZULFIDINE [Concomitant]
  4. RELAFEN [Concomitant]

REACTIONS (1)
  - BREAST CANCER [None]
